FAERS Safety Report 6199396-2 (Version None)
Quarter: 2009Q2

REPORT INFORMATION
  Report Type: 
  Country: None (occurrence: None)
  Receive Date: 20090522
  Receipt Date: 20090511
  Transmission Date: 20091009
  Serious: Yes (Death, Congenital Anomaly, Other)
  Sender: FDA-Public Use
  Company Number: US-PFIZER INC-2007055420

PATIENT

DRUGS (1)
  1. ZYVOX [Suspect]
     Route: 064

REACTIONS (2)
  - DRUG EXPOSURE DURING PREGNANCY [None]
  - MULTIPLE CONGENITAL ABNORMALITIES [None]
